FAERS Safety Report 7832856-4 (Version None)
Quarter: 2011Q4

REPORT INFORMATION
  Report Type: 
  Country: None (occurrence: None)
  Receive Date: 20111024
  Receipt Date: 20111018
  Transmission Date: 20120403
  Serious: No
  Sender: FDA-Public Use
  Company Number: US-BIOGENIDEC-2011BI039854

PATIENT
  Age: 48 Year
  Sex: Female

DRUGS (4)
  1. AVONEX [Suspect]
     Indication: MULTIPLE SCLEROSIS
     Route: 030
  2. AVONEX [Suspect]
     Route: 030
     Dates: start: 19961101
  3. AVONEX [Suspect]
     Route: 030
  4. BACLOFEN [Concomitant]
     Indication: MUSCLE SPASMS
     Dates: start: 20110101

REACTIONS (7)
  - VOMITING [None]
  - MUSCLE SPASMS [None]
  - PAIN [None]
  - FEELING DRUNK [None]
  - FATIGUE [None]
  - INFLUENZA LIKE ILLNESS [None]
  - INJECTION SITE PAIN [None]
